FAERS Safety Report 4546407-3 (Version None)
Quarter: 2005Q1

REPORT INFORMATION
  Report Type: 
  Country: None (occurrence: None)
  Receive Date: 20050103
  Receipt Date: 20041124
  Transmission Date: 20050727
  Serious: Yes (Life-Threatening, Hospitalization)
  Sender: FDA-Public Use
  Company Number: 2004101120

PATIENT
  Age: 86 Year
  Sex: Female

DRUGS (5)
  1. CELECOXIB (CELECOXIB) [Suspect]
     Indication: RHEUMATOID ARTHRITIS
     Dosage: 200 MG (200 MG, QD), ORAL
     Route: 048
  2. FUROSEMIDE [Concomitant]
  3. ZOPICLONE (ZOPICLONE) [Concomitant]
  4. ACETAMINOPHEN [Concomitant]
  5. DIXYRAZINE (DIXYRAZINE) [Concomitant]

REACTIONS (2)
  - DUODENAL ULCER HAEMORRHAGE [None]
  - HAEMATEMESIS [None]
